FAERS Safety Report 8350559-7 (Version None)
Quarter: 2012Q2

REPORT INFORMATION
  Report Type: 
  Country: None (occurrence: None)
  Receive Date: 20120510
  Receipt Date: 20120507
  Transmission Date: 20120825
  Serious: Yes (Life-Threatening, Hospitalization)
  Sender: FDA-Public Use
  Company Number: CZ-JNJFOC-20120508254

PATIENT
  Sex: Female

DRUGS (8)
  1. SIMPONI [Suspect]
     Indication: RHEUMATOID ARTHRITIS
     Route: 058
     Dates: start: 20120215, end: 20120215
  2. AULIN [Concomitant]
     Dates: start: 20110629
  3. METHOTREXATE [Concomitant]
     Dates: start: 20081022
  4. MEDROL [Concomitant]
     Dates: start: 20071106
  5. ACIDUM FOLICUM [Concomitant]
     Dates: start: 20081022
  6. FERROUS SULFATE TAB [Concomitant]
     Dates: start: 20110629
  7. ARAVA [Concomitant]
     Dates: start: 20110922
  8. VIGANTOL [Concomitant]
     Dates: start: 20071106

REACTIONS (1)
  - PNEUMONIA [None]
